FAERS Safety Report 17869438 (Version 1)
Quarter: 2020Q2

REPORT INFORMATION
  Report Type: Spontaneous
  Country: FR (occurrence: FR)
  Receive Date: 20200608
  Receipt Date: 20200608
  Transmission Date: 20200714
  Serious: Yes (Hospitalization)
  Sender: FDA-Public Use
  Company Number: FR-TEVA-2020-FR-1244822

PATIENT
  Age: 20 Year
  Sex: Female
  Weight: 64 kg

DRUGS (12)
  1. ZOPHREN [Concomitant]
     Active Substance: ONDANSETRON
  2. PRIMPERAN [Concomitant]
     Active Substance: METOCLOPRAMIDE HYDROCHLORIDE
  3. DOXORUBICINE TEVA 50 MG/25 ML, SOLUTION INJECTABLE [Suspect]
     Active Substance: DOXORUBICIN
     Indication: EWING^S SARCOMA
     Dosage: 64MG
     Route: 041
     Dates: start: 20200429, end: 20200430
  4. EMEND [Concomitant]
     Active Substance: APREPITANT
  5. LUTERAN 10 MG, COMPRIME [Concomitant]
  6. NIVESTIM [Concomitant]
     Active Substance: FILGRASTIM
  7. VINCRISTINE TEVA [Suspect]
     Active Substance: VINCRISTINE
     Indication: EWING^S SARCOMA
     Dosage: 2MG
     Route: 041
     Dates: start: 20200429, end: 20200430
  8. ZYRTEC 10 MG, COMPRIME PELLICULE SECABLE [Concomitant]
  9. SOLU-MEDROL [Concomitant]
     Active Substance: METHYLPREDNISOLONE SODIUM SUCCINATE
  10. ENDOXAN 1000 MG, POUDRE POUR SOLUTION INJECTABLE [Suspect]
     Active Substance: CYCLOPHOSPHAMIDE
     Indication: EWING^S SARCOMA
     Dosage: 2000MG
     Route: 041
     Dates: start: 20200429, end: 20200430
  11. ATARAX [Concomitant]
     Active Substance: HYDROXYZINE HYDROCHLORIDE
  12. MESNA EG [Concomitant]
     Active Substance: MESNA

REACTIONS (3)
  - Febrile bone marrow aplasia [Recovered/Resolved]
  - Herpes simplex reactivation [Recovering/Resolving]
  - Stomatitis [Recovering/Resolving]

NARRATIVE: CASE EVENT DATE: 20200506
